FAERS Safety Report 6086898-2 (Version None)
Quarter: 2009Q1

REPORT INFORMATION
  Report Type: 
  Country: None (occurrence: None)
  Receive Date: 20090219
  Receipt Date: 20090211
  Transmission Date: 20090719
  Serious: Yes (Other)
  Sender: FDA-Public Use
  Company Number: CHPA2009US04268

PATIENT
  Age: 53 Year
  Sex: Female

DRUGS (2)
  1. NICOTINE [Suspect]
     Indication: SMOKING CESSATION THERAPY
     Dosage: UNK,UNK,TRANSDERMAL
     Route: 062
  2. NICOTINE [Suspect]
     Indication: SMOKING CESSATION THERAPY
     Dosage: ORAL
     Route: 048

REACTIONS (6)
  - ASTHMA [None]
  - ATRIOVENTRICULAR BLOCK [None]
  - BRONCHITIS [None]
  - EMPHYSEMA [None]
  - POOR PERIPHERAL CIRCULATION [None]
  - TREATMENT NONCOMPLIANCE [None]
